FAERS Safety Report 12910783 (Version 4)
Quarter: 2017Q4

REPORT INFORMATION
  Report Type: Spontaneous
  Country: US (occurrence: US)
  Receive Date: 20161104
  Receipt Date: 20171121
  Transmission Date: 20180320
  Serious: No
  Sender: FDA-Public Use
  Company Number: US-JNJFOC-20161006873

PATIENT
  Sex: Female
  Weight: 99.79 kg

DRUGS (29)
  1. LOSARTAN. [Concomitant]
     Active Substance: LOSARTAN
     Indication: HYPERTENSION
     Route: 065
  2. TIMOLOL. [Concomitant]
     Active Substance: TIMOLOL
     Dosage: IN BOTH EYES
     Route: 065
  3. TRIAMCINOLONE [Concomitant]
     Active Substance: TRIAMCINOLONE
     Route: 065
  4. MUPIROCIN. [Concomitant]
     Active Substance: MUPIROCIN
     Route: 065
  5. XARELTO [Suspect]
     Active Substance: RIVAROXABAN
     Indication: HEART RATE IRREGULAR
     Dosage: EVENING WITH FOOD
     Route: 048
     Dates: start: 2015
  6. SOTALOL. [Concomitant]
     Active Substance: SOTALOL
     Indication: HEART RATE IRREGULAR
     Route: 065
  7. PRUNUS CERASUS [Concomitant]
     Indication: ARTHRITIS
     Route: 065
  8. ELAN [Concomitant]
     Route: 065
  9. EYLEA [Concomitant]
     Active Substance: AFLIBERCEPT
     Dosage: IN RIGHT EYE EVERY 6-8 WEEKS
     Route: 065
  10. OXYBUTYNIN. [Concomitant]
     Active Substance: OXYBUTYNIN CHLORIDE
     Indication: POLLAKIURIA
     Route: 065
  11. ZINC. [Concomitant]
     Active Substance: ZINC
     Route: 065
  12. VITAMIN D3 [Concomitant]
     Active Substance: CHOLECALCIFEROL
     Dosage: 400 OR 2000 UNITS
     Route: 065
  13. TRAMADOL. [Concomitant]
     Active Substance: TRAMADOL
     Route: 065
  14. XARELTO [Suspect]
     Active Substance: RIVAROXABAN
     Indication: HEART RATE IRREGULAR
     Route: 048
     Dates: start: 201405, end: 2014
  15. CENTRUM SILVER [Concomitant]
     Active Substance: MINERALS\VITAMINS
     Route: 065
  16. VITAMIN D3 [Concomitant]
     Active Substance: CHOLECALCIFEROL
     Route: 065
  17. TYLENOL [Concomitant]
     Active Substance: ACETAMINOPHEN
     Route: 065
  18. BUMETANIDE. [Concomitant]
     Active Substance: BUMETANIDE
     Indication: HYPERTENSION
     Route: 065
  19. COENZYME Q10 [Concomitant]
     Active Substance: UBIDECARENONE
     Route: 065
  20. OFLOXACIN. [Concomitant]
     Active Substance: OFLOXACIN
     Dosage: ONLY 3 TO 4 DAYS AFTER
     Route: 065
  21. BUSPIRONE [Concomitant]
     Active Substance: BUSPIRONE HYDROCHLORIDE
     Indication: ANXIETY
     Dosage: TWICE
     Route: 065
  22. CALCIUM [Concomitant]
     Active Substance: CALCIUM
     Route: 065
  23. MAGNESIUM [Concomitant]
     Active Substance: MAGNESIUM
     Route: 065
  24. XARELTO [Suspect]
     Active Substance: RIVAROXABAN
     Indication: THROMBOSIS
     Route: 048
     Dates: start: 201405, end: 2014
  25. XARELTO [Suspect]
     Active Substance: RIVAROXABAN
     Indication: THROMBOSIS
     Dosage: EVENING WITH FOOD
     Route: 048
     Dates: start: 2015
  26. VITAMIN B COMPLEX [Concomitant]
     Active Substance: CYANOCOBALAMIN\DEXPANTHENOL\NIACINAMIDE\PYRIDOXINE HYDROCHLORIDE\RIBOFLAVIN 5^-PHOSPHATE SODIUM\THIAMINE HYDROCHLORIDE\VITAMIN B COMPLEX
     Route: 065
  27. LATANOPROST. [Concomitant]
     Active Substance: LATANOPROST
     Indication: MACULAR DEGENERATION
     Dosage: BOTH EYES
     Route: 065
  28. SYSTANE (HYPROMELLOSE 2910 (4000 MPA.S)) [Concomitant]
     Active Substance: HYPROMELLOSE 2910 (4000 MPA.S)
     Indication: DRY EYE
     Route: 065
  29. SOTALOL. [Concomitant]
     Active Substance: SOTALOL
     Indication: HYPERTENSION
     Route: 065

REACTIONS (5)
  - Gait disturbance [Not Recovered/Not Resolved]
  - Body height decreased [Unknown]
  - Fear [Unknown]
  - Peripheral swelling [Not Recovered/Not Resolved]
  - Fall [Not Recovered/Not Resolved]

NARRATIVE: CASE EVENT DATE: 2014
